FAERS Safety Report 7327039-0 (Version None)
Quarter: 2011Q1

REPORT INFORMATION
  Report Type: 
  Country: None (occurrence: None)
  Receive Date: 20110302
  Receipt Date: 20110225
  Transmission Date: 20110831
  Serious: Yes (Other)
  Sender: FDA-Public Use
  Company Number: US-AMGEN-USASP2011009748

PATIENT
  Age: 5 Year
  Sex: Male
  Weight: 28.3 kg

DRUGS (8)
  1. BUDESONIDE [Concomitant]
     Dosage: UNK UNK, QD
     Dates: start: 20101116
  2. NPLATE [Suspect]
     Indication: IDIOPATHIC THROMBOCYTOPENIC PURPURA
     Dosage: 240 A?G, QWK
     Route: 058
     Dates: start: 20100628
  3. PLATELETS [Concomitant]
     Dosage: UNK
     Dates: start: 20110222
  4. PREDNISOLONE [Concomitant]
     Dosage: 15 MG, UNK
     Dates: start: 20110110
  5. NPLATE [Suspect]
     Indication: THROMBOCYTOPENIA
  6. IVIGLOB-EX [Concomitant]
  7. KEPPRA [Concomitant]
     Dosage: 100 MG/ML, BID
     Dates: start: 20071204
  8. ZANTAC                             /00550801/ [Concomitant]
     Dosage: 15 MG/ML, BID
     Dates: start: 20100413

REACTIONS (7)
  - NASOPHARYNGITIS [None]
  - PETECHIAE [None]
  - VIRAL INFECTION [None]
  - PLATELET COUNT DECREASED [None]
  - INCREASED TENDENCY TO BRUISE [None]
  - THERAPEUTIC RESPONSE DECREASED [None]
  - EAR INFECTION [None]
